FAERS Safety Report 24327417 (Version 1)
Quarter: 2024Q3

REPORT INFORMATION
  Report Type: Spontaneous
  Country: IL (occurrence: IL)
  Receive Date: 20240917
  Receipt Date: 20240917
  Transmission Date: 20241016
  Serious: Yes (Other)
  Sender: RANBAXY
  Company Number: IL-SUN PHARMACEUTICAL INDUSTRIES LTD-2024R1-467166

PATIENT
  Age: 28 Year
  Sex: Female

DRUGS (4)
  1. HYDROXYCHLOROQUINE [Suspect]
     Active Substance: HYDROXYCHLOROQUINE
     Indication: Palindromic rheumatism
     Dosage: UNK
     Route: 065
  2. METHOTREXATE [Suspect]
     Active Substance: METHOTREXATE
     Indication: Palindromic rheumatism
     Dosage: UNK
     Route: 048
  3. COLCHICINE [Suspect]
     Active Substance: COLCHICINE
     Indication: Palindromic rheumatism
     Dosage: UNK
     Route: 065
  4. METHOTREXATE [Suspect]
     Active Substance: METHOTREXATE
     Indication: Palindromic rheumatism
     Dosage: UNK
     Route: 051

REACTIONS (2)
  - Treatment failure [Unknown]
  - Disease recurrence [Unknown]
